FAERS Safety Report 5038900-4 (Version None)
Quarter: 2006Q2

REPORT INFORMATION
  Report Type: 
  Country: None (occurrence: None)
  Receive Date: 20060601
  Receipt Date: 20060109
  Transmission Date: 20061013
  Serious: No
  Sender: FDA-Public Use
  Company Number: 2005PV006333

PATIENT
  Age: 64 Year
  Sex: Female
  Weight: 167.8309 kg

DRUGS (7)
  1. BYETTA [Suspect]
     Indication: DIABETES MELLITUS NON-INSULIN-DEPENDENT
     Dosage: 5 MCG;BID;SC; 5 MCG;QD;SC
     Route: 058
     Dates: start: 20051201, end: 20051229
  2. BYETTA [Suspect]
     Indication: DIABETES MELLITUS NON-INSULIN-DEPENDENT
     Dosage: 5 MCG;BID;SC; 5 MCG;QD;SC
     Route: 058
     Dates: start: 20051229, end: 20060107
  3. ISOPHANE INSULIN [Concomitant]
  4. REGULAR INSULIN [Concomitant]
  5. PEPCID [Concomitant]
  6. HUMULIN 70/30 [Concomitant]
  7. HUMULIN N [Concomitant]

REACTIONS (8)
  - ASTHENIA [None]
  - DIZZINESS [None]
  - DYSPEPSIA [None]
  - ERUCTATION [None]
  - HICCUPS [None]
  - NAUSEA [None]
  - REGURGITATION OF FOOD [None]
  - RETCHING [None]
